FAERS Safety Report 5147281-7 (Version None)
Quarter: 2006Q4

REPORT INFORMATION
  Report Type: 
  Country: None (occurrence: None)
  Receive Date: 20061103
  Receipt Date: 20061025
  Transmission Date: 20070319
  Serious: Yes (Other)
  Sender: FDA-Public Use
  Company Number: 2006109605

PATIENT
  Age: 56 Year
  Sex: Male
  Weight: 106.5953 kg

DRUGS (10)
  1. LIPITOR [Suspect]
     Indication: BLOOD CHOLESTEROL INCREASED
     Dosage: 20 MG(20MG,IN1 D),
  2. FUROSEMIDE [Suspect]
  3. ALLOPURINOL [Suspect]
     Indication: GOUT
  4. LISINOPRIL [Concomitant]
  5. DOXYCYCLINE(DOXYCYLINE) [Concomitant]
  6. METOPROLOL TARTRATE [Concomitant]
  7. ASPIRIN [Concomitant]
  8. CALCIUM (CALCIUM) [Concomitant]
  9. MULTI-VITAMINS [Concomitant]
  10. OMEPRAZOLE [Concomitant]

REACTIONS (5)
  - BLOOD TRIGLYCERIDES INCREASED [None]
  - HIGH DENSITY LIPOPROTEIN DECREASED [None]
  - PHOTODERMATOSIS [None]
  - PSORIASIS [None]
  - TOTAL CHOLESTEROL/HDL RATIO INCREASED [None]
